FAERS Safety Report 8117032-2 (Version None)
Quarter: 2012Q1

REPORT INFORMATION
  Report Type: 
  Country: None (occurrence: None)
  Receive Date: 20120206
  Receipt Date: 20120128
  Transmission Date: 20120608
  Serious: Yes (Death, Life-Threatening, Hospitalization)
  Sender: FDA-Public Use
  Company Number: JP-CELGENEUS-087-50794-11062594

PATIENT
  Sex: Male

DRUGS (14)
  1. PRIMPERAN TAB [Concomitant]
     Route: 065
     Dates: start: 20110525, end: 20110601
  2. ADONA [Concomitant]
     Route: 065
     Dates: end: 20110613
  3. SLOWHEIM [Concomitant]
     Route: 065
     Dates: start: 20110524, end: 20110613
  4. LEBENIN [Concomitant]
     Route: 065
     Dates: end: 20110613
  5. GLAKAY [Concomitant]
     Route: 065
     Dates: end: 20110613
  6. URIEF [Concomitant]
     Route: 065
     Dates: end: 20110613
  7. VIDAZA [Suspect]
     Indication: MYELODYSPLASTIC SYNDROME
     Dosage: 100 MILLIGRAM
     Route: 041
     Dates: start: 20110525, end: 20110527
  8. VIDAZA [Suspect]
     Dosage: 100 MILLIGRAM
     Route: 041
     Dates: start: 20110530, end: 20110601
  9. TRANEXAMIC ACID [Concomitant]
     Route: 065
     Dates: end: 20110613
  10. PRIMOBOLAN-DEPOT INJ [Concomitant]
     Route: 065
     Dates: end: 20110613
  11. VANCOMYCIN HCL [Concomitant]
     Route: 065
     Dates: start: 20110523, end: 20110525
  12. SHAKUYAKU-KANZO-TO [Concomitant]
     Route: 065
     Dates: start: 20110525
  13. PRAVASTATIN SODIUM [Concomitant]
     Route: 065
     Dates: end: 20110613
  14. ARMODAFINIL [Concomitant]
     Route: 065
     Dates: start: 20110523, end: 20110525

REACTIONS (5)
  - WHITE BLOOD CELL COUNT DECREASED [None]
  - ORAL MUCOSA EROSION [None]
  - BLOOD CREATININE INCREASED [None]
  - SEPSIS [None]
  - BLOOD UREA INCREASED [None]
